FAERS Safety Report 19134024 (Version 1)
Quarter: 2021Q2

REPORT INFORMATION
  Report Type: Spontaneous
  Country: US (occurrence: US)
  Receive Date: 20210414
  Receipt Date: 20210414
  Transmission Date: 20210717
  Serious: Yes (Other)
  Sender: FDA-Public Use
  Company Number: US-PFIZER INC-2021381716

PATIENT

DRUGS (3)
  1. XELJANZ [Suspect]
     Active Substance: TOFACITINIB CITRATE
     Indication: RHEUMATOID ARTHRITIS
     Dosage: 5 MG (2 IN 1 D)
     Route: 048
     Dates: start: 201805, end: 202002
  2. HUMIRA [Suspect]
     Active Substance: ADALIMUMAB
     Dosage: UNK
     Route: 058
  3. XELJANZ [Suspect]
     Active Substance: TOFACITINIB CITRATE
     Dosage: 5 MG (2 IN 1 D)
     Route: 048
     Dates: start: 2020

REACTIONS (4)
  - Rheumatoid arthritis [Unknown]
  - Herpes zoster [Unknown]
  - Dermatitis allergic [Unknown]
  - Infection [Unknown]

NARRATIVE: CASE EVENT DATE: 2019
